FAERS Safety Report 15434936 (Version 1)
Quarter: 2018Q3

REPORT INFORMATION
  Report Type: Spontaneous
  Country: US (occurrence: US)
  Receive Date: 20180923
  Receipt Date: 20180923
  Transmission Date: 20181010
  Serious: Yes (Other)
  Sender: FDA-Public Use
  Company Number: None

PATIENT
  Age: 53 Year
  Sex: Male
  Weight: 103.5 kg

DRUGS (8)
  1. MULTI VITAMIN [Concomitant]
     Active Substance: VITAMINS
  2. MAGNESIUM [Concomitant]
     Active Substance: MAGNESIUM
  3. LOVAZA [Concomitant]
     Active Substance: OMEGA-3-ACID ETHYL ESTERS
  4. XARELTO [Suspect]
     Active Substance: RIVAROXABAN
     Indication: HEPATIC VASCULAR THROMBOSIS
     Dosage: ?          QUANTITY:1 TABLET(S);?
     Route: 048
  5. BISTOLIC [Concomitant]
  6. ASPIRIN. [Concomitant]
     Active Substance: ASPIRIN
  7. ASTROVASTIN [Concomitant]
  8. LOSARTAN. [Concomitant]
     Active Substance: LOSARTAN

REACTIONS (3)
  - Back pain [None]
  - Joint range of motion decreased [None]
  - Loss of personal independence in daily activities [None]

NARRATIVE: CASE EVENT DATE: 20170823
